FAERS Safety Report 8443200-6 (Version None)
Quarter: 2012Q2

REPORT INFORMATION
  Report Type: 
  Country: None (occurrence: None)
  Receive Date: 20120617
  Receipt Date: 20120605
  Transmission Date: 20120825
  Serious: Yes (Other)
  Sender: FDA-Public Use
  Company Number: JP-VERTEX PHARMACEUTICALS INC.-AE-2012-008620

PATIENT
  Sex: Male

DRUGS (6)
  1. PEGINTERFERON ALFA-2B [Concomitant]
     Route: 051
     Dates: start: 20120217
  2. LIMAPROST [Concomitant]
     Route: 048
     Dates: end: 20120302
  3. TELAVIC (TELAPREVIR) [Suspect]
     Route: 048
     Dates: start: 20120221, end: 20120510
  4. RIBAVIRIN [Concomitant]
     Route: 048
     Dates: start: 20120217
  5. TELAVIC (TELAPREVIR) [Suspect]
     Indication: HEPATITIS C
     Route: 048
     Dates: start: 20120217, end: 20120220
  6. EXFORGE [Concomitant]
     Route: 048
     Dates: end: 20120302

REACTIONS (1)
  - RENAL IMPAIRMENT [None]
